FAERS Safety Report 23675933 (Version 2)
Quarter: 2024Q2

REPORT INFORMATION
  Report Type: Spontaneous
  Country: JP (occurrence: JP)
  Receive Date: 20240327
  Receipt Date: 20240507
  Transmission Date: 20240715
  Serious: No
  Sender: FDA-Public Use
  Company Number: JP-002147023-NVSJ2024JP003604

PATIENT
  Age: 84 Year
  Sex: Female

DRUGS (3)
  1. GLYCOPYRRONIUM\INDACATEROL [Suspect]
     Active Substance: GLYCOPYRRONIUM\INDACATEROL
     Indication: Chronic obstructive pulmonary disease
     Dosage: 1DF:GLYCOPYRRONIUM BROMIDE50UG, INDACATEROL MALEATE110UG
     Route: 055
  2. GLYCOPYRRONIUM\INDACATEROL [Suspect]
     Active Substance: GLYCOPYRRONIUM\INDACATEROL
     Dosage: 1DF:GLYCOPYRRONIUM BROMIDE50UG, INDACATEROL MALEATE110UG
     Route: 048
     Dates: end: 20240322
  3. GLYCOPYRRONIUM\INDACATEROL [Suspect]
     Active Substance: GLYCOPYRRONIUM\INDACATEROL
     Dosage: 1DF:GLYCOPYRRONIUM BROMIDE50UG, INDACATEROL MALEATE110UG
     Route: 055

REACTIONS (1)
  - Incorrect route of product administration [Recovering/Resolving]
